FAERS Safety Report 10370868 (Version 1)
Quarter: 2014Q3

REPORT INFORMATION
  Report Type: Report from Study
  Country: PK (occurrence: PK)
  Receive Date: 20140808
  Receipt Date: 20140808
  Transmission Date: 20150326
  Serious: Yes (Death)
  Sender: FDA-Public Use
  Company Number: PHHY2014PK097376

PATIENT
  Age: 64 Year
  Sex: Female

DRUGS (1)
  1. EXFORGE HCT [Suspect]
     Active Substance: AMLODIPINE BESYLATE\HYDROCHLOROTHIAZIDE\VALSARTAN
     Indication: HYPERTENSION
     Dosage: 1 DF, A DAY (160 MG VALS, 10 MG AMLO AND 25 MG HCTZ)
     Route: 048
     Dates: start: 20130422, end: 20140421

REACTIONS (1)
  - Death [Fatal]

NARRATIVE: CASE EVENT DATE: 20140422
